FAERS Safety Report 8990110 (Version 1)
Quarter: 2012Q4

REPORT INFORMATION
  Report Type: 
  Country: US (occurrence: US)
  Receive Date: 20121228
  Receipt Date: 20121228
  Transmission Date: 20130627
  Serious: No
  Sender: FDA-Public Use
  Company Number: US-PFIZER INC-2012331486

PATIENT
  Age: 61 Year
  Sex: Female
  Weight: 64.4 kg

DRUGS (2)
  1. CHANTIX [Suspect]
     Indication: SMOKING CESSATION THERAPY
     Dosage: UNK
     Dates: start: 2007, end: 2007
  2. ADDERALL [Concomitant]
     Indication: ATTENTION DEFICIT DISORDER
     Dosage: UNK

REACTIONS (1)
  - Nausea [Unknown]
